FAERS Safety Report 4788943-0 (Version None)
Quarter: 2005Q4

REPORT INFORMATION
  Report Type: 
  Country: None (occurrence: None)
  Receive Date: 20051004
  Receipt Date: 20050921
  Transmission Date: 20060501
  Serious: Yes (Hospitalization)
  Sender: FDA-Public Use
  Company Number: 2005124804

PATIENT
  Age: 51 Year
  Sex: Female
  Weight: 77.1115 kg

DRUGS (4)
  1. DETROL LA [Suspect]
     Indication: HYPERTONIC BLADDER
     Dosage: 4 MG (4 MG, 1 IN 1 D), ORAL
     Route: 048
     Dates: start: 20050201
  2. METOPROLOL TARTRATE [Concomitant]
  3. LOVASTATIN [Concomitant]
  4. CITALOPRAM (CITALOPRAM) [Concomitant]

REACTIONS (1)
  - DRY MOUTH [None]
